FAERS Safety Report 14192160 (Version 1)
Quarter: 2017Q4

REPORT INFORMATION
  Report Type: Spontaneous
  Country: IT (occurrence: IT)
  Receive Date: 20171115
  Receipt Date: 20171115
  Transmission Date: 20180321
  Serious: Yes (Other)
  Sender: FDA-Public Use
  Company Number: IT-PFIZER INC-2017483385

PATIENT
  Age: 6 Year
  Sex: Male

DRUGS (5)
  1. ZARONTIN [Suspect]
     Active Substance: ETHOSUXIMIDE
     Dosage: 9 MG, DAILY
     Dates: start: 20170101, end: 20171006
  2. DEPAKIN [Concomitant]
     Active Substance: VALPROATE SODIUM
     Dosage: 600 MG, UNK
  3. RISPERDAL [Concomitant]
     Active Substance: RISPERIDONE
     Dosage: 0.5 MG, UNK
  4. RIVOTRIL [Suspect]
     Active Substance: CLONAZEPAM
     Indication: GENERALISED TONIC-CLONIC SEIZURE
     Dosage: 10 GTT, DAILY
     Route: 048
     Dates: start: 20170101, end: 20171006
  5. MELATONINA [Concomitant]
     Dosage: 8 GTT, DAILY

REACTIONS (5)
  - Confusional state [Recovering/Resolving]
  - Fall [Recovering/Resolving]
  - Hypotonia [Recovering/Resolving]
  - Gait disturbance [Recovering/Resolving]
  - Headache [Recovering/Resolving]

NARRATIVE: CASE EVENT DATE: 20171006
